FAERS Safety Report 7645654-1 (Version None)
Quarter: 2011Q3

REPORT INFORMATION
  Report Type: 
  Country: None (occurrence: None)
  Receive Date: 20110729
  Receipt Date: 20110727
  Transmission Date: 20111222
  Serious: No
  Sender: FDA-Public Use
  Company Number: US-PFIZER INC-2011171576

PATIENT
  Sex: Female

DRUGS (2)
  1. PAMELOR [Concomitant]
     Dosage: UNK
  2. GABAPENTIN [Suspect]
     Indication: NEURALGIA
     Dosage: 600 MG, 3X/DAY
     Route: 048
     Dates: start: 20071003, end: 20100630

REACTIONS (1)
  - PHOTOSENSITIVITY REACTION [None]
